FAERS Safety Report 6069019-1 (Version None)
Quarter: 2009Q1

REPORT INFORMATION
  Report Type: 
  Country: None (occurrence: None)
  Receive Date: 20090206
  Receipt Date: 20090129
  Transmission Date: 20090719
  Serious: Yes (Death, Hospitalization)
  Sender: FDA-Public Use
  Company Number: US-ELI_LILLY_AND_COMPANY-US200808004435

PATIENT
  Sex: Male

DRUGS (17)
  1. BYETTA [Suspect]
     Indication: TYPE 2 DIABETES MELLITUS
     Dosage: 10 UG, 2/D
     Route: 058
     Dates: start: 20061001, end: 20070101
  2. BYETTA [Suspect]
     Dosage: 10 UG, 2/D
     Route: 058
     Dates: start: 20070101, end: 20070401
  3. LANOXIN [Concomitant]
     Indication: ATRIAL FIBRILLATION
     Dosage: 0.25 MG, UNKNOWN
     Route: 048
     Dates: end: 20070917
  4. PRINIVIL [Concomitant]
     Indication: HYPERTENSION
     Dosage: 5 MG, UNKNOWN
     Route: 048
     Dates: end: 20070917
  5. COUMADIN [Concomitant]
     Indication: ATRIAL FIBRILLATION
     Dosage: 4 MG, UNKNOWN
     Route: 048
     Dates: end: 20070917
  6. ZOCOR [Concomitant]
     Indication: HYPERLIPIDAEMIA
     Dosage: 10 MG, UNKNOWN
     Route: 048
     Dates: end: 20070917
  7. LOPID [Concomitant]
     Indication: HYPERLIPIDAEMIA
     Dosage: 600 MG, 2/D
     Route: 048
     Dates: end: 20070917
  8. GLYBURIDE [Concomitant]
     Indication: DIABETES MELLITUS
     Dosage: 10 MG, EACH MORNING
     Route: 048
     Dates: start: 20051201, end: 20070917
  9. GLYBURIDE [Concomitant]
     Dosage: 5 MG, EACH EVENING
     Route: 048
     Dates: start: 20051201, end: 20070917
  10. METFORMIN HCL [Concomitant]
     Indication: DIABETES MELLITUS
     Dosage: 1000 MG, 2/D
     Route: 048
     Dates: start: 20051201, end: 20070917
  11. DITROPAN [Concomitant]
     Indication: BENIGN PROSTATIC HYPERPLASIA
     Dosage: 15 MG, UNKNOWN
     Route: 048
     Dates: end: 20070917
  12. RESTORIL [Concomitant]
     Indication: INSOMNIA
     Dosage: 7.5 MG, UNKNOWN
     Route: 048
     Dates: end: 20070917
  13. DOMPERIDONE [Concomitant]
     Indication: IMPAIRED GASTRIC EMPTYING
     Dosage: 20 MG, 2/D
     Route: 048
     Dates: start: 20070601, end: 20070917
  14. OMEPRAZOLE [Concomitant]
     Indication: IMPAIRED GASTRIC EMPTYING
     Dosage: 40 MG, UNKNOWN
     Route: 048
     Dates: start: 20070601, end: 20070917
  15. SODIUM BICARBONATE [Concomitant]
     Indication: IMPAIRED GASTRIC EMPTYING
     Dosage: 40 MG, UNKNOWN
     Route: 048
     Dates: start: 20070601, end: 20070917
  16. MULTI-VITAMIN [Concomitant]
  17. GLUCOSAMINE SULFATE W/CHONDROITIN [Concomitant]

REACTIONS (1)
  - PANCREATIC CARCINOMA METASTATIC [None]
